FAERS Safety Report 19198428 (Version 1)
Quarter: 2021Q2

REPORT INFORMATION
  Report Type: Spontaneous
  Country: PT (occurrence: PT)
  Receive Date: 20210430
  Receipt Date: 20210430
  Transmission Date: 20210717
  Serious: Yes (Other)
  Sender: FDA-Public Use
  Company Number: PT-SUN PHARMACEUTICAL INDUSTRIES LTD-2021R1-294183

PATIENT
  Age: 50 Year
  Sex: Male

DRUGS (1)
  1. IMATINIB. [Suspect]
     Active Substance: IMATINIB MESYLATE
     Indication: MORPHOEA
     Dosage: 200 MILLIGRAM, DAILY
     Route: 065

REACTIONS (2)
  - Periorbital oedema [Unknown]
  - Off label use [Unknown]
